FAERS Safety Report 7705755-6 (Version None)
Quarter: 2011Q3

REPORT INFORMATION
  Report Type: 
  Country: None (occurrence: None)
  Receive Date: 20110824
  Receipt Date: 20110818
  Transmission Date: 20111222
  Serious: Yes (Hospitalization)
  Sender: FDA-Public Use
  Company Number: IN-B.I. PHARMACEUTICALS,INC./RIDGEFIELD-2011-CS-00698IG

PATIENT
  Sex: Male
  Weight: 72 kg

DRUGS (1)
  1. AGGRENOX [Suspect]
     Indication: CEREBROVASCULAR ACCIDENT
     Dosage: ASPRIN 25MG+ER DIPYRIDAMOLE 200MG
     Route: 048
     Dates: start: 20090325

REACTIONS (1)
  - DYSPHAGIA [None]
